FAERS Safety Report 10267391 (Version 1)
Quarter: 2014Q2

REPORT INFORMATION
  Report Type: Spontaneous
  Country: JP (occurrence: JP)
  Receive Date: 20140630
  Receipt Date: 20140630
  Transmission Date: 20141212
  Serious: Yes (Other)
  Sender: FDA-Public Use
  Company Number: JP-MYLANLABS-2014S1014562

PATIENT
  Age: 52 Year
  Sex: Female

DRUGS (8)
  1. TOCILIZUMAB [Suspect]
     Indication: RHEUMATOID ARTHRITIS
     Dosage: 8 MG/KG
     Route: 065
     Dates: start: 200401, end: 200805
  2. TOCILIZUMAB [Suspect]
     Indication: RHEUMATOID ARTHRITIS
     Dosage: 8 MG/KG
     Route: 065
     Dates: start: 200903, end: 201103
  3. METHOTREXATE [Suspect]
     Indication: RHEUMATOID ARTHRITIS
     Dosage: 6MG
     Route: 065
  4. METHOTREXATE [Suspect]
     Indication: RHEUMATOID ARTHRITIS
     Dosage: 8MG
     Route: 065
     Dates: start: 200903, end: 201103
  5. PREDNISOLONE [Concomitant]
     Indication: RHEUMATOID ARTHRITIS
     Dosage: 5MG
     Route: 065
  6. PREDNISOLONE [Concomitant]
     Indication: RHEUMATOID ARTHRITIS
     Dosage: 10MG, THEN REDUCED TO 5MG
     Route: 065
     Dates: start: 200903, end: 201103
  7. PREDNISOLONE [Concomitant]
     Indication: RHEUMATOID ARTHRITIS
     Dosage: 5MG, THEN REDUCED TO 2.5MG
     Route: 065
     Dates: start: 200903, end: 201103
  8. PREDNISOLONE [Concomitant]
     Indication: RHEUMATOID ARTHRITIS
     Dosage: 2.5MG
     Route: 065
     Dates: start: 200903, end: 201103

REACTIONS (1)
  - Adult T-cell lymphoma/leukaemia [Recovered/Resolved]
